FAERS Safety Report 9205010 (Version 1)
Quarter: 2013Q2

REPORT INFORMATION
  Report Type: Spontaneous
  Country: US (occurrence: None)
  Receive Date: 20130401
  Receipt Date: 20130401
  Transmission Date: 20140414
  Serious: No
  Sender: FDA-Public Use
  Company Number: None

PATIENT
  Age: 75 Year
  Sex: Male
  Weight: 78.02 kg

DRUGS (1)
  1. ASTEPRO [Suspect]
     Indication: NASAL CONGESTION
     Route: 045
     Dates: start: 20130304, end: 20130308

REACTIONS (4)
  - Choking sensation [None]
  - Respiratory disorder [None]
  - Fatigue [None]
  - Movement disorder [None]
